FAERS Safety Report 4696129-3 (Version None)
Quarter: 2005Q2

REPORT INFORMATION
  Report Type: 
  Country: None (occurrence: None)
  Receive Date: 20050620
  Receipt Date: 20050609
  Transmission Date: 20051028
  Serious: Yes (Death, Hospitalization)
  Sender: FDA-Public Use
  Company Number: 2005059098

PATIENT
  Age: 76 Year
  Sex: Male

DRUGS (2)
  1. LYRICA [Suspect]
     Indication: CARPAL TUNNEL SYNDROME
     Dosage: 300 MG (150 MG, INTERVAL: EVERY DAY), ORAL
     Route: 048
     Dates: start: 20050321, end: 20050331
  2. IDAPTAN (TRIMETAZINE HYDROCHLORIDE) [Concomitant]

REACTIONS (6)
  - ATRIAL FIBRILLATION [None]
  - CEREBRAL ARTERY OCCLUSION [None]
  - CEREBROVASCULAR ACCIDENT [None]
  - DEPRESSED LEVEL OF CONSCIOUSNESS [None]
  - RESPIRATORY TRACT INFECTION [None]
  - VOMITING [None]
